FAERS Safety Report 8401113-X (Version None)
Quarter: 2012Q2

REPORT INFORMATION
  Report Type: 
  Country: None (occurrence: None)
  Receive Date: 20120601
  Receipt Date: 20120528
  Transmission Date: 20120825
  Serious: No
  Sender: FDA-Public Use
  Company Number: US-PFIZER INC-2012128277

PATIENT
  Sex: Female
  Weight: 44 kg

DRUGS (4)
  1. SIMVASTATIN [Concomitant]
     Indication: BLOOD CHOLESTEROL INCREASED
     Dosage: UNK
  2. XALATAN [Suspect]
     Indication: GLAUCOMA
     Dosage: 0.005%, ONE DROP IN EACH EYE ONCE A DAY
     Route: 047
     Dates: start: 20110101
  3. TOPROL-XL [Concomitant]
     Indication: HYPERTENSION
     Dosage: UNK
  4. WARFARIN [Concomitant]
     Dosage: UNK

REACTIONS (1)
  - SOMNOLENCE [None]
